FAERS Safety Report 21087587 (Version 1)
Quarter: 2022Q3

REPORT INFORMATION
  Report Type: Spontaneous
  Country: IT (occurrence: IT)
  Receive Date: 20220715
  Receipt Date: 20220715
  Transmission Date: 20221027
  Serious: Yes (Other)
  Sender: FDA-Public Use
  Company Number: IT-PFIZER INC-PV202200014087

PATIENT
  Age: 31 Year
  Sex: Female

DRUGS (4)
  1. FINGOLIMOD [Suspect]
     Active Substance: FINGOLIMOD
     Indication: Multiple sclerosis
     Dosage: UNK
     Route: 065
     Dates: start: 20200612
  2. COMIRNATY [Suspect]
     Active Substance: TOZINAMERAN
     Indication: COVID-19 immunisation
     Dosage: UNK (DOSE 1, SINGLE)
     Route: 065
  3. COMIRNATY [Suspect]
     Active Substance: TOZINAMERAN
     Dosage: UNK (DOSE 2, SINGLE)
     Route: 065
  4. COMIRNATY [Suspect]
     Active Substance: TOZINAMERAN
     Dosage: UNK, TOTAL (~DOSE 3 (BOOSTER), SINGLE)
     Route: 065
     Dates: start: 20211122, end: 20211122

REACTIONS (2)
  - COVID-19 [Recovered/Resolved]
  - Drug ineffective [Recovered/Resolved]

NARRATIVE: CASE EVENT DATE: 20211227
